FAERS Safety Report 9789843 (Version 1)
Quarter: 2013Q4

REPORT INFORMATION
  Report Type: Spontaneous
  Country: US (occurrence: None)
  Receive Date: 20131230
  Receipt Date: 20131230
  Transmission Date: 20140711
  Serious: Yes (Disabling)
  Sender: FDA-Public Use
  Company Number: None

PATIENT
  Age: 42 Year
  Sex: Female
  Weight: 62.6 kg

DRUGS (1)
  1. LOSARTAN [Suspect]
     Indication: HYPERTENSION
     Dosage: 1 TAB ONCE DAILY
     Route: 048
     Dates: start: 20101201, end: 20131227

REACTIONS (6)
  - Gastrointestinal disorder [None]
  - Food intolerance [None]
  - Abdominal discomfort [None]
  - Impaired work ability [None]
  - Fatigue [None]
  - Gastrointestinal pain [None]
